FAERS Safety Report 7522141-2 (Version None)
Quarter: 2011Q2

REPORT INFORMATION
  Report Type: 
  Country: None (occurrence: None)
  Receive Date: 20110603
  Receipt Date: 20110525
  Transmission Date: 20111010
  Serious: Yes (Hospitalization)
  Sender: FDA-Public Use
  Company Number: FR-PFIZER INC-2011117456

PATIENT
  Age: 74 Year
  Sex: Female

DRUGS (6)
  1. ERYTHROMYCIN STEARATE [Suspect]
     Indication: PYREXIA
     Dosage: 1 DF, 3X/DAY
     Route: 042
     Dates: start: 20110507
  2. NOVOMIX [Suspect]
     Dosage: 44 IU, DAILY
     Route: 058
     Dates: start: 20110506
  3. LOSARTAN POTASSIUM [Suspect]
     Dosage: 1 DF, DAILY
     Route: 048
     Dates: start: 20110430, end: 20110507
  4. ERYTHROMYCIN STEARATE [Suspect]
     Indication: INFECTION
  5. CORDARONE [Suspect]
     Indication: TACHYCARDIA
     Dosage: 200 MG, DAILY
     Route: 048
     Dates: start: 20110505, end: 20110508
  6. TRIVASTAL [Suspect]
     Dosage: 2 DF, DAILY
     Route: 048
     Dates: start: 20110503, end: 20110507

REACTIONS (2)
  - CONVULSION [None]
  - HYPOTONIA [None]
